FAERS Safety Report 16226237 (Version 3)
Quarter: 2021Q3

REPORT INFORMATION
  Report Type: Report from Study
  Country: US (occurrence: US)
  Receive Date: 20190423
  Receipt Date: 20210824
  Transmission Date: 20211014
  Serious: Yes (Hospitalization)
  Sender: FDA-Public Use
  Company Number: US-SHIRE-US201912731

PATIENT
  Sex: Female
  Weight: 110 kg

DRUGS (8)
  1. OXANDROLONE. [Concomitant]
     Active Substance: OXANDROLONE
  2. TOPIRAMATE. [Concomitant]
     Active Substance: TOPIRAMATE
  3. AMLODIPINE [Concomitant]
     Active Substance: AMLODIPINE BESYLATE
  4. ATORVASTATIN [Concomitant]
     Active Substance: ATORVASTATIN
  5. MULTIVITAMIN [Concomitant]
     Active Substance: VITAMINS
  6. LEVOTHYROXINE. [Concomitant]
     Active Substance: LEVOTHYROXINE
  7. 644 (ECALLANTIDE) [Suspect]
     Active Substance: ECALLANTIDE
     Indication: HEREDITARY ANGIOEDEMA
     Dosage: 30 MILLIGRAM, PRN
     Route: 058
     Dates: start: 20190423
  8. 644 (ECALLANTIDE) [Suspect]
     Active Substance: ECALLANTIDE
     Indication: IMMUNE SYSTEM DISORDER

REACTIONS (1)
  - Hereditary angioedema [Recovered/Resolved]
